FAERS Safety Report 19110333 (Version 1)
Quarter: 2021Q2

REPORT INFORMATION
  Report Type: Spontaneous
  Country: LV (occurrence: LV)
  Receive Date: 20210408
  Receipt Date: 20210408
  Transmission Date: 20210717
  Serious: Yes (Hospitalization)
  Sender: FDA-Public Use
  Company Number: LV-ELI_LILLY_AND_COMPANY-LV202103014353

PATIENT
  Age: 55 Year
  Sex: Male

DRUGS (3)
  1. METFORMINUM [METFORMIN] [Concomitant]
     Indication: TYPE 2 DIABETES MELLITUS
     Dosage: UNK, UNKNOWN
     Route: 065
     Dates: start: 201701
  2. HUMALOG [Suspect]
     Active Substance: INSULIN LISPRO
     Indication: TYPE 2 DIABETES MELLITUS
     Dosage: 10 U, OTHER (8? 10 UNITS BEFORE MEALS)
     Route: 058
     Dates: start: 20170105, end: 20200414
  3. HUMULIN N [Suspect]
     Active Substance: INSULIN HUMAN
     Indication: TYPE 2 DIABETES MELLITUS
     Dosage: 12 U, DAILY (NIGHT)
     Route: 058
     Dates: start: 20170105, end: 20200414

REACTIONS (1)
  - Gangrene [Recovered/Resolved with Sequelae]

NARRATIVE: CASE EVENT DATE: 201909
